FAERS Safety Report 25265714 (Version 1)
Quarter: 2025Q2

REPORT INFORMATION
  Report Type: Spontaneous
  Country: US (occurrence: US)
  Receive Date: 20250503
  Receipt Date: 20250503
  Transmission Date: 20250717
  Serious: No
  Sender: AUROBINDO
  Company Number: US-AUROBINDO-AUR-APL-2024-040456

PATIENT
  Age: 59 Year
  Sex: Female
  Weight: 86.18 kg

DRUGS (2)
  1. DEXTROMETHORPHAN\GUAIFENESIN [Suspect]
     Active Substance: DEXTROMETHORPHAN\GUAIFENESIN
     Indication: Illness
     Dosage: 2 DOSAGE FORM, TWO TIMES A DAY
     Route: 065
     Dates: start: 20240806
  2. DEXTROMETHORPHAN\GUAIFENESIN [Suspect]
     Active Substance: DEXTROMETHORPHAN\GUAIFENESIN
     Indication: Nasal congestion

REACTIONS (8)
  - Dizziness [Unknown]
  - Abdominal discomfort [Unknown]
  - Pain [Unknown]
  - Influenza like illness [Unknown]
  - Irritability [Unknown]
  - Dry mouth [Unknown]
  - Feeling abnormal [Unknown]
  - Accidental overdose [Unknown]
